FAERS Safety Report 20605900 (Version 1)
Quarter: 2022Q1

REPORT INFORMATION
  Report Type: Spontaneous
  Country: US (occurrence: US)
  Receive Date: 20220317
  Receipt Date: 20220317
  Transmission Date: 20220423
  Serious: No
  Sender: FDA-Public Use
  Company Number: US-009507513-2203USA003574

PATIENT
  Sex: Female

DRUGS (2)
  1. STROMECTOL [Suspect]
     Active Substance: IVERMECTIN
     Indication: Strongyloidiasis
     Dosage: BY MOUTH
     Route: 048
  2. STROMECTOL [Suspect]
     Active Substance: IVERMECTIN
     Dosage: ENEMA
     Route: 054

REACTIONS (1)
  - Incorrect route of product administration [Unknown]
